FAERS Safety Report 10382780 (Version 1)
Quarter: 2014Q3

REPORT INFORMATION
  Report Type: Spontaneous
  Country: US (occurrence: US)
  Receive Date: 20140813
  Receipt Date: 20140813
  Transmission Date: 20150326
  Serious: Yes (Hospitalization)
  Sender: FDA-Public Use
  Company Number: US-SA-2013SA101426

PATIENT
  Age: 64 Year
  Sex: Female
  Weight: 63.5 kg

DRUGS (20)
  1. FABRAZYME [Suspect]
     Active Substance: AGALSIDASE BETA
     Indication: FABRY^S DISEASE
     Route: 042
     Dates: start: 201401
  2. AZATHIOPRINE. [Concomitant]
     Active Substance: AZATHIOPRINE
  3. MIACALCIN [Concomitant]
     Active Substance: CALCITONIN SALMON
  4. TRIAZOLAM. [Concomitant]
     Active Substance: TRIAZOLAM
  5. FABRAZYME [Suspect]
     Active Substance: AGALSIDASE BETA
     Indication: FABRY^S DISEASE
     Route: 042
     Dates: start: 2013, end: 2014
  6. OMEPRAZOLE. [Concomitant]
     Active Substance: OMEPRAZOLE
     Indication: GASTROOESOPHAGEAL REFLUX DISEASE
  7. FLECAINIDE [Concomitant]
     Active Substance: FLECAINIDE
  8. FLECAINIDE [Concomitant]
     Active Substance: FLECAINIDE
     Dosage: 21/2
  9. PEPTO-BISMOL [Concomitant]
     Active Substance: BISMUTH SUBSALICYLATE\CALCIUM CARBONATE
  10. MULTIVITAMINS [Concomitant]
     Active Substance: VITAMINS
  11. IRON [Concomitant]
     Active Substance: IRON
  12. WELCHOL [Concomitant]
     Active Substance: COLESEVELAM HYDROCHLORIDE
  13. FABRAZYME [Suspect]
     Active Substance: AGALSIDASE BETA
     Indication: FABRY^S DISEASE
     Route: 042
     Dates: start: 20090604, end: 20130703
  14. PREDNISONE. [Concomitant]
     Active Substance: PREDNISONE
     Indication: TRANSPLANT REJECTION
  15. NASONEX [Concomitant]
     Active Substance: MOMETASONE FUROATE
  16. DEXILANT [Concomitant]
     Active Substance: DEXLANSOPRAZOLE
  17. MAGNESIUM [Concomitant]
     Active Substance: MAGNESIUM
  18. METOPROLOL [Concomitant]
     Active Substance: METOPROLOL
  19. SIMVASTATIN. [Concomitant]
     Active Substance: SIMVASTATIN
     Indication: BLOOD CHOLESTEROL INCREASED
  20. CRANBERRY EXTRACT [Concomitant]

REACTIONS (3)
  - Atrial fibrillation [Unknown]
  - Diarrhoea [Recovering/Resolving]
  - Gastrointestinal pain [Unknown]

NARRATIVE: CASE EVENT DATE: 20130703
